FAERS Safety Report 23493405 (Version 1)
Quarter: 2024Q1

REPORT INFORMATION
  Report Type: Spontaneous
  Country: CN (occurrence: CN)
  Receive Date: 20240207
  Receipt Date: 20240207
  Transmission Date: 20240410
  Serious: Yes (Death)
  Sender: FDA-Public Use
  Company Number: CN-PARATEK PHARMACEUTICALS, INC.-2024PTK00060

PATIENT
  Age: 69 Year
  Sex: Male

DRUGS (5)
  1. OMADACYCLINE [Suspect]
     Active Substance: OMADACYCLINE
     Indication: Pneumonia chlamydial
     Dosage: UNK
  2. OMADACYCLINE [Suspect]
     Active Substance: OMADACYCLINE
     Indication: Acute respiratory distress syndrome
  3. BIAPENEM [Concomitant]
     Active Substance: BIAPENEM
  4. UNSPECIFIED SEDATION [Concomitant]
  5. UNSPECIFIED ANALGESIA [Concomitant]

REACTIONS (1)
  - Drug ineffective for unapproved indication [Fatal]
